FAERS Safety Report 6338460-1 (Version None)
Quarter: 2009Q3

REPORT INFORMATION
  Report Type: 
  Country: None (occurrence: None)
  Receive Date: 20090901
  Receipt Date: 20090817
  Transmission Date: 20100115
  Serious: Yes (Death, Hospitalization)
  Sender: FDA-Public Use
  Company Number: 2008AL011044

PATIENT
  Age: 83 Year
  Sex: Female

DRUGS (15)
  1. DIGOXIN [Suspect]
     Dosage: 0.25MG, PO
     Route: 048
     Dates: start: 20020101, end: 20080101
  2. ENALAPRIL MALEATE [Concomitant]
  3. FUROSEMIDE [Concomitant]
  4. PREDNISONE TAB [Concomitant]
  5. WARFARIN SODIUM [Concomitant]
  6. OXYBUTYNIN [Concomitant]
  7. PROMETHAZINE [Concomitant]
  8. METOPROLOL TARTRATE [Concomitant]
  9. HYDROXYZ HCL [Concomitant]
  10. LISINOPRIL [Concomitant]
  11. LEVOTHYROXINE SODIUM [Concomitant]
  12. METFORMIN HCL [Concomitant]
  13. KLOR-CON [Concomitant]
  14. DETROL LA [Concomitant]
  15. DIPHEN/ATROP [Concomitant]

REACTIONS (20)
  - AORTIC CALCIFICATION [None]
  - CARDIAC FAILURE CONGESTIVE [None]
  - CARDIOACTIVE DRUG LEVEL ABOVE THERAPEUTIC [None]
  - CARDIOMEGALY [None]
  - DIARRHOEA [None]
  - DIZZINESS [None]
  - ECONOMIC PROBLEM [None]
  - HEADACHE [None]
  - HYPERKALAEMIA [None]
  - HYPOKALAEMIA [None]
  - MALAISE [None]
  - MULTIPLE INJURIES [None]
  - NAUSEA [None]
  - OEDEMA PERIPHERAL [None]
  - PAIN [None]
  - PRODUCT QUALITY ISSUE [None]
  - RENAL FAILURE [None]
  - THERAPEUTIC AGENT TOXICITY [None]
  - UNEVALUABLE EVENT [None]
  - VOMITING [None]
